FAERS Safety Report 8926141 (Version 1)
Quarter: 2012Q4

REPORT INFORMATION
  Report Type: 
  Country: CN (occurrence: CN)
  Receive Date: 20121127
  Receipt Date: 20121127
  Transmission Date: 20130627
  Serious: Yes (Hospitalization)
  Sender: FDA-Public Use
  Company Number: CN-009507513-1211CHN009949

PATIENT
  Age: 18 Year
  Sex: Male
  Weight: 100 kg

DRUGS (1)
  1. CLARITYNE [Suspect]
     Indication: FOOD ALLERGY
     Dosage: 10 mg, qd
     Route: 048
     Dates: start: 20100827, end: 20100827

REACTIONS (1)
  - Anaphylactic shock [Recovered/Resolved]
